FAERS Safety Report 8453343-9 (Version None)
Quarter: 2012Q2

REPORT INFORMATION
  Report Type: 
  Country: None (occurrence: None)
  Receive Date: 20120620
  Receipt Date: 20120613
  Transmission Date: 20120825
  Serious: Yes (Other)
  Sender: FDA-Public Use
  Company Number: JP-ABBOTT-12P-087-0945744-00

PATIENT
  Age: 38 Year
  Sex: Male

DRUGS (2)
  1. ALLOPURINOL [Concomitant]
     Indication: HYPERURICAEMIA
     Route: 048
     Dates: start: 20110601, end: 20120601
  2. TRICOR [Suspect]
     Indication: HYPERLIPIDAEMIA
     Route: 048
     Dates: start: 20110601

REACTIONS (1)
  - DRUG-INDUCED LIVER INJURY [None]
